FAERS Safety Report 7024293-X (Version None)
Quarter: 2010Q4

REPORT INFORMATION
  Report Type: 
  Country: None (occurrence: None)
  Receive Date: 20101001
  Receipt Date: 20100923
  Transmission Date: 20110411
  Serious: No
  Sender: FDA-Public Use
  Company Number: US-B.I. PHARMACEUTICALS,INC./RIDGEFIELD-2010-BP-10809BP

PATIENT
  Sex: Male

DRUGS (1)
  1. ZANTAC [Suspect]

REACTIONS (1)
  - CONDITION AGGRAVATED [None]
